FAERS Safety Report 22358264 (Version 3)
Quarter: 2023Q2

REPORT INFORMATION
  Report Type: Spontaneous
  Country: US (occurrence: US)
  Receive Date: 20230524
  Receipt Date: 20230627
  Transmission Date: 20230721
  Serious: No
  Sender: FDA-Public Use
  Company Number: US-002147023-NVSC2023US112244

PATIENT
  Sex: Female

DRUGS (2)
  1. LEQVIO [Suspect]
     Active Substance: INCLISIRAN SODIUM
     Indication: Product used for unknown indication
     Dosage: UNK, 1ST DOSE
     Route: 065
  2. LEQVIO [Suspect]
     Active Substance: INCLISIRAN SODIUM
     Dosage: UNK, 2ND DOSE
     Route: 065
     Dates: start: 20230406

REACTIONS (4)
  - Oropharyngeal pain [Unknown]
  - Cough [Unknown]
  - Sinus pain [Recovering/Resolving]
  - Eye pruritus [Recovering/Resolving]
